FAERS Safety Report 20890034 (Version 1)
Quarter: 2022Q2

REPORT INFORMATION
  Report Type: Spontaneous
  Country: IE (occurrence: IE)
  Receive Date: 20220530
  Receipt Date: 20220530
  Transmission Date: 20220721
  Serious: Yes (Other)
  Sender: FDA-Public Use
  Company Number: IE-BRISTOL-MYERS SQUIBB COMPANY-2022-046829

PATIENT
  Age: 47 Year
  Sex: Male
  Weight: 63 kg

DRUGS (1)
  1. NIVOLUMAB [Suspect]
     Active Substance: NIVOLUMAB
     Indication: Cholangiocarcinoma
     Route: 042

REACTIONS (6)
  - Intentional product use issue [Unknown]
  - Hepatic artery haemorrhage [Unknown]
  - Renal infarct [Unknown]
  - Malignant neoplasm progression [Unknown]
  - Gastric haemorrhage [Unknown]
  - Thrombosis [Unknown]
